FAERS Safety Report 10928343 (Version 1)
Quarter: 2015Q1

REPORT INFORMATION
  Report Type: Spontaneous
  Country: DE (occurrence: DE)
  Receive Date: 20150319
  Receipt Date: 20150319
  Transmission Date: 20150721
  Serious: Yes (Other)
  Sender: FDA-Public Use
  Company Number: DE-RANBAXY-2014R1-82087

PATIENT
  Age: 66 Year
  Sex: Male

DRUGS (1)
  1. CODEINE PHOSPHORICUM FORTE COMPREN [Suspect]
     Active Substance: CODEINE PHOSPHATE
     Indication: COUGH
     Dosage: UNK
     Route: 065

REACTIONS (1)
  - Pancreatitis [Unknown]
